FAERS Safety Report 24056244 (Version 1)
Quarter: 2024Q3

REPORT INFORMATION
  Report Type: Spontaneous
  Country: CA (occurrence: CA)
  Receive Date: 20240705
  Receipt Date: 20240705
  Transmission Date: 20241017
  Serious: Yes (Death)
  Sender: TEVA
  Company Number: CA-TEVA-VS-3214922

PATIENT

DRUGS (3)
  1. CYTARABINE [Suspect]
     Active Substance: CYTARABINE
     Indication: Haematopoietic stem cell mobilisation
     Dosage: INJECTION
     Route: 065
  2. METHOTREXATE [Suspect]
     Active Substance: METHOTREXATE
     Indication: B-cell lymphoma
     Route: 065
  3. RITUXIMAB [Suspect]
     Active Substance: RITUXIMAB
     Indication: Haematopoietic stem cell mobilisation
     Route: 065

REACTIONS (2)
  - Infection [Fatal]
  - Off label use [Fatal]
